FAERS Safety Report 8387662 (Version 3)
Quarter: 2012Q4

REPORT INFORMATION
  Report Type: 
  Country: TR (occurrence: TR)
  Receive Date: 20120203
  Receipt Date: 20121109
  Transmission Date: 20130627
  Serious: Yes (Other)
  Sender: FDA-Public Use
  Company Number: TR-AMGEN-TURSP2012005936

PATIENT
  Age: 46 Year
  Sex: Male

DRUGS (2)
  1. ENBREL [Suspect]
     Indication: ANKYLOSING SPONDYLITIS
     Dosage: 50 mg, weekly
     Route: 058
     Dates: start: 2006, end: 20111114
  2. ENBREL [Suspect]
     Dosage: 25 mg, 2 times/wk
     Route: 058
     Dates: start: 2007, end: 20111020

REACTIONS (6)
  - Hypertension [Not Recovered/Not Resolved]
  - Vision blurred [Not Recovered/Not Resolved]
  - Blood pressure increased [Unknown]
  - Medical device complication [Recovered/Resolved]
  - Injection site pruritus [Not Recovered/Not Resolved]
  - Uveitis [Recovered/Resolved]
